FAERS Safety Report 12841813 (Version 1)
Quarter: 2016Q4

REPORT INFORMATION
  Report Type: Spontaneous
  Country: US (occurrence: US)
  Receive Date: 20161012
  Receipt Date: 20161012
  Transmission Date: 20170207
  Serious: Yes (Hospitalization, Other)
  Sender: FDA-Public Use
  Company Number: US-SEATTLE GENETICS-2016SGN00704

PATIENT
  Sex: Female

DRUGS (5)
  1. ZOFRAN [Concomitant]
     Active Substance: ONDANSETRON HYDROCHLORIDE
     Dosage: 8 MG, PRN
     Dates: start: 20151209
  2. IBUPROFEN. [Concomitant]
     Active Substance: IBUPROFEN
     Dosage: UNK, PRN
     Dates: start: 20150511
  3. PERCOCET                           /00446701/ [Concomitant]
     Active Substance: ACETAMINOPHEN\OXYCODONE HYDROCHLORIDE\OXYCODONE TEREPHTHALATE
     Dosage: UNK, PRN
     Dates: start: 20150924
  4. BRENTUXIMAB VEDOTIN [Suspect]
     Active Substance: BRENTUXIMAB VEDOTIN
     Indication: HODGKIN^S DISEASE
     Dosage: 1.8 MG/KG, Q21D
     Route: 042
     Dates: start: 20160321
  5. GRANISETRON HCL [Concomitant]
     Dosage: UNK
     Dates: start: 20150722

REACTIONS (3)
  - Diarrhoea [Recovered/Resolved]
  - Nausea [Recovered/Resolved with Sequelae]
  - Neutropenia [Recovered/Resolved]

NARRATIVE: CASE EVENT DATE: 20160329
